FAERS Safety Report 15483606 (Version 1)
Quarter: 2018Q4

REPORT INFORMATION
  Report Type: Spontaneous
  Country: US (occurrence: US)
  Receive Date: 20181003
  Receipt Date: 20181003
  Transmission Date: 20190205
  Serious: Yes (Disabling)
  Sender: FDA-Public Use
  Company Number: None

PATIENT

DRUGS (1)
  1. OLMESARTAN MEDOXOMIL 5MG TABS [Suspect]
     Active Substance: OLMESARTAN MEDOXOMIL
     Indication: HYPERTENSION
     Route: 048
     Dates: start: 20180620, end: 20180916

REACTIONS (4)
  - Ear pain [None]
  - Neck pain [None]
  - Product substitution issue [None]
  - Deafness bilateral [None]

NARRATIVE: CASE EVENT DATE: 20180815
